FAERS Safety Report 10027712 (Version 1)
Quarter: 2014Q1

REPORT INFORMATION
  Report Type: Spontaneous
  Country: US (occurrence: US)
  Receive Date: 20140321
  Receipt Date: 20140321
  Transmission Date: 20141002
  Serious: No
  Sender: FDA-Public Use
  Company Number: US-MALLINCKRODT-T201304152

PATIENT
  Sex: Female
  Weight: 97.51 kg

DRUGS (15)
  1. METHADONE [Suspect]
     Indication: PAIN
     Dosage: 10 MG, TID
     Route: 048
     Dates: start: 2011
  2. HYDROCODONE BITARTRATE AND ACETAMINOPHEN [Concomitant]
     Indication: PAIN
     Dosage: 10/325 MG, QID
     Route: 048
     Dates: start: 2010
  3. METHOCARBAMOL [Concomitant]
     Indication: PAIN
     Dosage: 750 MG, DAILY
     Route: 048
     Dates: start: 2012
  4. FLEXERIL                           /00428402/ [Concomitant]
     Indication: INSOMNIA
     Dosage: 10 MG, DAILY
     Route: 048
     Dates: start: 2011
  5. AMBIEN [Concomitant]
     Indication: INSOMNIA
     Dosage: 10 MG, DAILY
     Route: 048
     Dates: start: 201102
  6. TOPIRAMATE [Concomitant]
     Indication: MIGRAINE
     Dosage: 25 MG, 25 MG AM, 50 MG PM
     Route: 048
     Dates: start: 2003
  7. HYDROCHLOROTHIAZIDE [Concomitant]
     Indication: OEDEMA
     Dosage: 25 MG, BID
     Route: 048
     Dates: start: 2002
  8. LEVOTHYROXINE [Concomitant]
     Indication: HYPOTHYROIDISM
     Dosage: 75 ?G, QD
     Route: 048
     Dates: start: 2003
  9. SUMATRIPTAN [Concomitant]
     Indication: MIGRAINE
     Dosage: UNK, PRN
     Route: 048
     Dates: start: 1988
  10. CARBAMAZEPINE [Concomitant]
     Indication: TRIGEMINAL NEURALGIA
     Dosage: 200 MG, QD
     Route: 048
     Dates: start: 1998
  11. PANTOPRAZOLE [Concomitant]
     Indication: ABDOMINAL DISCOMFORT
     Dosage: 40 MG, QD
     Route: 048
  12. PRISTIQ [Concomitant]
     Indication: DEPRESSION
     Dosage: 100 MG, QD
     Route: 048
     Dates: start: 2011
  13. WELLBUTRIN XL [Concomitant]
     Indication: DEPRESSION
     Dosage: 300 MG, QD
     Route: 048
     Dates: start: 201211
  14. PRAVASTATIN [Concomitant]
     Indication: HYPERLIPIDAEMIA
     Dosage: 20 MG, QD
     Route: 048
     Dates: start: 2003
  15. MELOXICAM [Concomitant]
     Indication: ARTHRALGIA
     Dosage: 15 MG, QD
     Route: 048
     Dates: start: 1998

REACTIONS (1)
  - Drug screen negative [Not Recovered/Not Resolved]
